FAERS Safety Report 8215457-8 (Version None)
Quarter: 2012Q1

REPORT INFORMATION
  Report Type: 
  Country: None (occurrence: None)
  Receive Date: 20120316
  Receipt Date: 20120302
  Transmission Date: 20120608
  Serious: Yes (Other)
  Sender: FDA-Public Use
  Company Number: IN-ROCHE-1017863

PATIENT
  Weight: 60 kg

DRUGS (6)
  1. NICORANDIL [Concomitant]
     Dosage: 2 CC/HR
  2. ACETYLSALICYLIC ACID SRT [Concomitant]
  3. ENOXAPARIN SODIUM [Concomitant]
     Dosage: 60 UNITS EVERY HALF AN HOUR
     Route: 058
  4. METALYSE [Suspect]
     Indication: ACUTE MYOCARDIAL INFARCTION
     Route: 042
     Dates: start: 20111013, end: 20111013
  5. CLOPIDOGREL (PLAVIX) [Concomitant]
     Dosage: 8 TABS ADMINISTERED
  6. ATORVASTATIN [Concomitant]

REACTIONS (2)
  - CHEST PAIN [None]
  - ELECTROCARDIOGRAM ST SEGMENT ELEVATION [None]
